FAERS Safety Report 18326901 (Version 1)
Quarter: 2020Q3

REPORT INFORMATION
  Report Type: Spontaneous
  Country: AT (occurrence: AT)
  Receive Date: 20200929
  Receipt Date: 20200929
  Transmission Date: 20201103
  Serious: Yes (Hospitalization, Other)
  Sender: FDA-Public Use
  Company Number: AT-DSJP-DSE-2020-127531

PATIENT
  Age: 80 Year
  Sex: Male

DRUGS (1)
  1. LIXIANA [Suspect]
     Active Substance: EDOXABAN TOSYLATE
     Indication: ATRIAL FIBRILLATION
     Dosage: 30 MG, QD
     Route: 048
     Dates: end: 20200919

REACTIONS (2)
  - Gastrointestinal haemorrhage [Recovered/Resolved]
  - Gastritis erosive [Unknown]

NARRATIVE: CASE EVENT DATE: 2020
